FAERS Safety Report 14491403 (Version 2)
Quarter: 2018Q1

REPORT INFORMATION
  Report Type: Spontaneous
  Country: DE (occurrence: DE)
  Receive Date: 20180206
  Receipt Date: 20180326
  Transmission Date: 20180509
  Serious: Yes (Hospitalization)
  Sender: FDA-Public Use
  Company Number: PHHY2018DE013779

PATIENT
  Sex: Male

DRUGS (12)
  1. TEBONIN [Concomitant]
     Active Substance: GINKGO
     Indication: PRODUCT USED FOR UNKNOWN INDICATION
     Dosage: 240 MG, QD
     Route: 065
  2. SPIRONOLACTONE. [Concomitant]
     Active Substance: SPIRONOLACTONE
     Indication: PRODUCT USED FOR UNKNOWN INDICATION
     Route: 065
  3. BUDESONIDE. [Concomitant]
     Active Substance: BUDESONIDE
     Indication: PRODUCT USED FOR UNKNOWN INDICATION
     Dosage: UNK, BID
     Route: 065
  4. CLAVERSAL [Concomitant]
     Active Substance: MESALAMINE
     Indication: PRODUCT USED FOR UNKNOWN INDICATION
     Dosage: 500 MG, QD
     Route: 065
  5. TRILEPTAL [Suspect]
     Active Substance: OXCARBAZEPINE
     Indication: NARCOLEPSY
  6. BISOHEXAL [Concomitant]
     Active Substance: BISOPROLOL FUMARATE
     Indication: PRODUCT USED FOR UNKNOWN INDICATION
     Dosage: 2.5 MG, BID
     Route: 065
  7. RAMIPRIL. [Concomitant]
     Active Substance: RAMIPRIL
     Indication: PRODUCT USED FOR UNKNOWN INDICATION
     Dosage: 2.5 MG, BID
     Route: 065
  8. TORASEMIDE [Concomitant]
     Active Substance: TORSEMIDE
     Indication: PRODUCT USED FOR UNKNOWN INDICATION
     Dosage: 5 MG, QD
     Route: 065
  9. TRILEPTAL [Suspect]
     Active Substance: OXCARBAZEPINE
     Indication: HYPERSOMNIA-BULIMIA SYNDROME
     Dosage: 450 MG, QD
     Route: 065
  10. ELIQUIS [Concomitant]
     Active Substance: APIXABAN
     Indication: PRODUCT USED FOR UNKNOWN INDICATION
     Dosage: 5 MG, BID
     Route: 065
  11. TRILEPTAL [Suspect]
     Active Substance: OXCARBAZEPINE
     Indication: BIPOLAR DISORDER
     Dosage: 600 MG, QD
     Route: 048
     Dates: start: 2001
  12. DENOSUMAB [Concomitant]
     Active Substance: DENOSUMAB
     Indication: PRODUCT USED FOR UNKNOWN INDICATION
     Route: 065

REACTIONS (3)
  - Atrial fibrillation [Unknown]
  - Product use in unapproved indication [Unknown]
  - Cardiac disorder [Recovered/Resolved]

NARRATIVE: CASE EVENT DATE: 201710
